FAERS Safety Report 6350043-6 (Version None)
Quarter: 2009Q3

REPORT INFORMATION
  Report Type: 
  Country: None (occurrence: None)
  Receive Date: 20090911
  Receipt Date: 20090622
  Transmission Date: 20100115
  Serious: No
  Sender: FDA-Public Use
  Company Number: US-ABBOTT-06P-163-0346250-00

PATIENT
  Sex: Male
  Weight: 89.892 kg

DRUGS (13)
  1. HUMIRA [Suspect]
     Indication: RHEUMATOID ARTHRITIS
     Route: 058
     Dates: start: 20060101, end: 20060918
  2. HUMIRA [Suspect]
     Route: 058
     Dates: start: 20060918
  3. METHOTREXATE [Concomitant]
     Indication: ARTHRITIS
     Route: 048
  4. OMEPRAZOLE [Concomitant]
     Indication: GASTRIC ULCER
     Route: 048
  5. TERAZOSIN HYDROCHLORIDE [Concomitant]
     Indication: PROSTATIC DISORDER
     Route: 048
  6. CELECOXIB [Concomitant]
     Indication: RHEUMATOID ARTHRITIS
     Route: 048
  7. BISELECT [Concomitant]
     Indication: BLOOD PRESSURE
     Route: 048
  8. VYTORIN [Concomitant]
     Indication: BLOOD CHOLESTEROL
     Route: 048
  9. FOLGARD [Concomitant]
     Indication: VITAMIN SUPPLEMENTATION
     Route: 048
  10. FINASTERIDE [Concomitant]
     Indication: PROSTATIC DISORDER
     Route: 048
  11. ASPIRIN [Concomitant]
     Indication: DRUG USE FOR UNKNOWN INDICATION
     Route: 048
  12. GLUCOSAMINE [Concomitant]
     Indication: ARTHROPATHY
     Route: 048
  13. ALLEGRA D 24 HOUR [Concomitant]
     Indication: HYPERSENSITIVITY
     Route: 048

REACTIONS (4)
  - INCORRECT DOSE ADMINISTERED [None]
  - INJECTION SITE EXTRAVASATION [None]
  - INJECTION SITE HAEMATOMA [None]
  - LYME DISEASE [None]
